FAERS Safety Report 6663247-X (Version None)
Quarter: 2010Q1

REPORT INFORMATION
  Report Type: 
  Country: None (occurrence: None)
  Receive Date: 20100331
  Receipt Date: 20100331
  Transmission Date: 20100710
  Serious: No
  Sender: FDA-Public Use
  Company Number: None

PATIENT
  Sex: Female
  Weight: 63 kg

DRUGS (2)
  1. CISPLATIN [Suspect]
     Dates: end: 20100316
  2. TAXOL [Suspect]
     Dosage: 232 MG
     Dates: end: 20100316

REACTIONS (1)
  - NEUTROPENIA [None]
